FAERS Safety Report 5771759-6 (Version None)
Quarter: 2008Q2

REPORT INFORMATION
  Report Type: 
  Country: None (occurrence: None)
  Receive Date: 20080601
  Receipt Date: 20080227
  Transmission Date: 20081010
  Serious: No
  Sender: FDA-Public Use
  Company Number: US200802006642

PATIENT
  Age: 60 Year
  Sex: Female

DRUGS (9)
  1. BYETTA [Suspect]
     Indication: TYPE 2 DIABETES MELLITUS
     Dosage: 5 UG, 2/D, SUBCUTANEOUS ; 10 UG, 2/D, SUBCUTANEOUS ; 5 UG, 2/D, SUBCUTANEOUS
     Route: 058
     Dates: start: 20070801, end: 20071001
  2. BYETTA [Suspect]
     Indication: TYPE 2 DIABETES MELLITUS
     Dosage: 5 UG, 2/D, SUBCUTANEOUS ; 10 UG, 2/D, SUBCUTANEOUS ; 5 UG, 2/D, SUBCUTANEOUS
     Route: 058
     Dates: start: 20071001, end: 20071001
  3. BYETTA [Suspect]
     Indication: TYPE 2 DIABETES MELLITUS
     Dosage: 5 UG, 2/D, SUBCUTANEOUS ; 10 UG, 2/D, SUBCUTANEOUS ; 5 UG, 2/D, SUBCUTANEOUS
     Route: 058
     Dates: start: 20071001
  4. GLUCOPHAGE /USA/ (METFORMIN HYDROCHLORIDE) [Concomitant]
  5. AMARYL [Concomitant]
  6. INSULIN (INSULIN) [Concomitant]
  7. PREVACID [Concomitant]
  8. ALLEGRA [Concomitant]
  9. PRO-AIR (PROCATEROL HYDROCHLORIDE) [Concomitant]

REACTIONS (11)
  - BRONCHITIS [None]
  - DRUG INEFFECTIVE [None]
  - FEELING ABNORMAL [None]
  - HEADACHE [None]
  - HEART RATE INCREASED [None]
  - NAUSEA [None]
  - SINUSITIS [None]
  - SWELLING FACE [None]
  - TOOTH FRACTURE [None]
  - TOOTH INFECTION [None]
  - WEIGHT DECREASED [None]
